FAERS Safety Report 5414818-X (Version None)
Quarter: 2007Q3

REPORT INFORMATION
  Report Type: 
  Country: None (occurrence: None)
  Receive Date: 20070815
  Receipt Date: 20070803
  Transmission Date: 20080115
  Serious: Yes (Death, Life-Threatening, Hospitalization)
  Sender: FDA-Public Use
  Company Number: BG-JNJFOC-20060900673

PATIENT
  Sex: Male
  Weight: 67 kg

DRUGS (9)
  1. ABCIXIMAB [Suspect]
     Route: 042
  2. ABCIXIMAB [Suspect]
     Indication: ACUTE MYOCARDIAL INFARCTION
     Route: 042
  3. RETAVASE [Suspect]
     Indication: ACUTE MYOCARDIAL INFARCTION
     Route: 042
  4. PLACEBO [Suspect]
     Indication: ACUTE MYOCARDIAL INFARCTION
     Route: 042
  5. ASPIRIN [Concomitant]
     Indication: ACUTE MYOCARDIAL INFARCTION
     Route: 048
  6. HEPARIN [Concomitant]
     Route: 042
  7. HEPARIN [Concomitant]
     Indication: ACUTE MYOCARDIAL INFARCTION
     Route: 042
  8. NITROGLYCERIN [Concomitant]
     Indication: ACUTE MYOCARDIAL INFARCTION
     Route: 042
  9. OMEPRAZOLE [Concomitant]
     Indication: PROPHYLAXIS AGAINST GASTROINTESTINAL ULCER

REACTIONS (2)
  - CARDIOGENIC SHOCK [None]
  - HAEMORRHAGIC STROKE [None]
